FAERS Safety Report 4635028-X (Version None)
Quarter: 2005Q2

REPORT INFORMATION
  Report Type: 
  Country: None (occurrence: None)
  Receive Date: 20050414
  Receipt Date: 20050401
  Transmission Date: 20051028
  Serious: Yes (Hospitalization)
  Sender: FDA-Public Use
  Company Number: FR-JNJFOC-20050200716

PATIENT
  Age: 30 Year
  Sex: Male
  Weight: 60 kg

DRUGS (3)
  1. REMICADE [Suspect]
     Indication: UVEITIS
     Route: 042
  2. REMICADE [Suspect]
     Indication: ANKYLOSING SPONDYLITIS
     Route: 042
  3. SULFASALAZINE [Concomitant]
     Indication: ANKYLOSING SPONDYLITIS

REACTIONS (3)
  - DISSEMINATED TUBERCULOSIS [None]
  - GENERAL PHYSICAL HEALTH DETERIORATION [None]
  - PERICARDITIS TUBERCULOUS [None]
